FAERS Safety Report 7611269-4 (Version None)
Quarter: 2011Q3

REPORT INFORMATION
  Report Type: 
  Country: None (occurrence: None)
  Receive Date: 20110715
  Receipt Date: 20110712
  Transmission Date: 20111222
  Serious: Yes (Hospitalization, Other)
  Sender: FDA-Public Use
  Company Number: US-PFIZER INC-2011156517

PATIENT
  Age: 75 Year
  Sex: Male
  Weight: 63.7 kg

DRUGS (1)
  1. SUTENT [Suspect]
     Indication: NON-SMALL CELL LUNG CANCER
     Dosage: 37.5 MG, 1X/DAY
     Route: 048
     Dates: start: 20110310

REACTIONS (3)
  - HYPERTENSION [None]
  - CHEST PAIN [None]
  - MUSCULAR WEAKNESS [None]
